FAERS Safety Report 22615431 (Version 1)
Quarter: 2023Q2

REPORT INFORMATION
  Report Type: Spontaneous
  Country: US (occurrence: US)
  Receive Date: 20230619
  Receipt Date: 20230619
  Transmission Date: 20230722
  Serious: No
  Sender: FDA-Public Use
  Company Number: US-BRISTOL-MYERS SQUIBB COMPANY-2023-085939

PATIENT
  Age: 76 Year
  Sex: Male
  Weight: 70.76 kg

DRUGS (1)
  1. LENALIDOMIDE [Suspect]
     Active Substance: LENALIDOMIDE
     Indication: Plasma cell myeloma
     Route: 048
     Dates: start: 20230405

REACTIONS (4)
  - Gastrointestinal pain [Unknown]
  - Abdominal discomfort [Unknown]
  - Abdominal distension [Unknown]
  - Eating disorder [Unknown]
